FAERS Safety Report 24210596 (Version 2)
Quarter: 2024Q3

REPORT INFORMATION
  Report Type: Report from Study
  Country: FR (occurrence: FR)
  Receive Date: 20240814
  Receipt Date: 20240924
  Transmission Date: 20241017
  Serious: Yes (Hospitalization)
  Sender: EMD SERONO INC
  Company Number: FR-PFIZER INC-PV202300135289

PATIENT
  Age: 54 Year
  Sex: Female

DRUGS (1)
  1. AVELUMAB [Suspect]
     Active Substance: AVELUMAB
     Indication: Transitional cell carcinoma metastatic
     Dates: start: 20201023, end: 20201023

REACTIONS (1)
  - N-terminal prohormone brain natriuretic peptide increased [Recovered/Resolved]

NARRATIVE: CASE EVENT DATE: 20201104
